FAERS Safety Report 13891816 (Version 1)
Quarter: 2017Q3

REPORT INFORMATION
  Report Type: Spontaneous
  Country: US (occurrence: US)
  Receive Date: 20170822
  Receipt Date: 20170822
  Transmission Date: 20171127
  Serious: Yes (Other)
  Sender: FDA-Public Use
  Company Number: US-AMGEN-USASP2017124329

PATIENT
  Age: 59 Year
  Sex: Female

DRUGS (8)
  1. XANAX [Concomitant]
     Active Substance: ALPRAZOLAM
  2. ADDERALL [Concomitant]
     Active Substance: AMPHETAMINE ASPARTATE\AMPHETAMINE SULFATE\DEXTROAMPHETAMINE SACCHARATE\DEXTROAMPHETAMINE SULFATE
     Dosage: UNK
  3. REXULTI [Suspect]
     Active Substance: BREXPIPRAZOLE
     Indication: ANXIETY
     Dosage: UNK
     Route: 065
     Dates: start: 20170724
  4. ATENOLOL W/HYDROCHLOROTHIAZIDE [Concomitant]
     Active Substance: ATENOLOL\HYDROCHLOROTHIAZIDE
  5. REXULTI [Suspect]
     Active Substance: BREXPIPRAZOLE
     Indication: DEPRESSION
     Dosage: 2 MG, QD
     Route: 065
     Dates: start: 201609
  6. PRISTIQ EXTENDED-RELEASE [Concomitant]
     Active Substance: DESVENLAFAXINE SUCCINATE
  7. REPATHA [Suspect]
     Active Substance: EVOLOCUMAB
     Indication: BLOOD CHOLESTEROL ABNORMAL
     Dosage: UNK, Q2WK
     Route: 065
  8. PLAVIX [Concomitant]
     Active Substance: CLOPIDOGREL BISULFATE
     Dosage: UNK

REACTIONS (7)
  - Mental disorder [Not Recovered/Not Resolved]
  - Muscular weakness [Recovering/Resolving]
  - Tachyphrenia [Not Recovered/Not Resolved]
  - Anger [Not Recovered/Not Resolved]
  - Anxiety [Not Recovered/Not Resolved]
  - Cardiac disorder [Not Recovered/Not Resolved]
  - Insomnia [Not Recovered/Not Resolved]

NARRATIVE: CASE EVENT DATE: 2016
